FAERS Safety Report 13300858 (Version 1)
Quarter: 2017Q1

REPORT INFORMATION
  Report Type: Spontaneous
  Country: US (occurrence: US)
  Receive Date: 20170306
  Receipt Date: 20170306
  Transmission Date: 20170428
  Serious: No
  Sender: FDA-Public Use
  Company Number: None

PATIENT
  Age: 53 Year
  Sex: Female
  Weight: 90 kg

DRUGS (19)
  1. MARSHMALLOW CAPSULES [Concomitant]
  2. LYSINE [Concomitant]
     Active Substance: LYSINE
  3. ZINC AND IRON [Concomitant]
  4. ACTONEL [Suspect]
     Active Substance: RISEDRONATE SODIUM
     Indication: OSTEOPENIA
     Dosage: QUANTITY:1 TABLET(S);OTHER FREQUENCY:ONCE WEEKLY;?
     Route: 048
     Dates: start: 20170222, end: 20170306
  5. NONI [Concomitant]
  6. VITAMIN D3 [Concomitant]
     Active Substance: CHOLECALCIFEROL
  7. BETA CAROTENE [Concomitant]
  8. CELEBREX [Concomitant]
     Active Substance: CELECOXIB
  9. BIOTIN [Concomitant]
     Active Substance: BIOTIN
  10. LIPITOR [Concomitant]
     Active Substance: ATORVASTATIN CALCIUM
  11. CELEXA [Concomitant]
     Active Substance: CITALOPRAM HYDROBROMIDE
  12. CALCIUM [Concomitant]
     Active Substance: CALCIUM
  13. PQQ [Concomitant]
  14. CRANBERRY. [Concomitant]
     Active Substance: CRANBERRY
  15. ESTROGEN [Concomitant]
  16. FOLIC ACID. [Concomitant]
     Active Substance: FOLIC ACID
  17. ROYAL JELLY [Concomitant]
     Active Substance: ROYAL JELLY
  18. BEE POLLEN [Concomitant]
     Active Substance: BEE POLLEN
  19. COQ10 [Concomitant]
     Active Substance: UBIDECARENONE

REACTIONS (2)
  - Pain in extremity [None]
  - Pelvic pain [None]

NARRATIVE: CASE EVENT DATE: 20170306
